FAERS Safety Report 19911302 (Version 1)
Quarter: 2021Q4

REPORT INFORMATION
  Report Type: Spontaneous
  Country: US (occurrence: US)
  Receive Date: 20211002
  Receipt Date: 20211002
  Transmission Date: 20220303
  Serious: Yes (Other)
  Sender: FDA-Public Use
  Company Number: None

PATIENT
  Age: 24 Year
  Sex: Female

DRUGS (2)
  1. REGEN-COV [Suspect]
     Active Substance: CASIRIVIMAB\IMDEVIMAB
     Indication: Exposure to SARS-CoV-2
     Dosage: ?          OTHER FREQUENCY:ONE TIME;
     Route: 041
     Dates: start: 20211002, end: 20211002
  2. Casirivimab 600mg and Imdevimab 600mg [Concomitant]
     Dates: start: 20211002, end: 20211002

REACTIONS (2)
  - Pruritus [None]
  - Erythema [None]

NARRATIVE: CASE EVENT DATE: 20211002
